FAERS Safety Report 26092388 (Version 1)
Quarter: 2025Q4

REPORT INFORMATION
  Report Type: Spontaneous
  Country: EU (occurrence: EU)
  Receive Date: 20251126
  Receipt Date: 20251126
  Transmission Date: 20260118
  Serious: Yes (Other)
  Sender: NOVARTIS
  Company Number: EU-ROCHE-2633006

PATIENT
  Age: 43 Year
  Sex: Female

DRUGS (5)
  1. FINGOLIMOD [Suspect]
     Active Substance: FINGOLIMOD
     Indication: Product used for unknown indication
     Dosage: UNK
     Route: 065
     Dates: start: 20200214
  2. FINGOLIMOD [Suspect]
     Active Substance: FINGOLIMOD
     Indication: Lymphopenia
  3. OCREVUS [Suspect]
     Active Substance: OCRELIZUMAB
     Indication: Relapsing multiple sclerosis
     Dosage: 300 MG
     Route: 042
     Dates: start: 20200129, end: 20200129
  4. OCREVUS [Suspect]
     Active Substance: OCRELIZUMAB
     Dosage: UNK
     Route: 065
     Dates: start: 20200129
  5. FINGOLIMOD [Concomitant]
     Active Substance: FINGOLIMOD
     Indication: Lymphopenia
     Dosage: UNK
     Route: 065

REACTIONS (5)
  - Lymphopenia [Recovering/Resolving]
  - Haemoglobin increased [Unknown]
  - Red blood cell count increased [Unknown]
  - Platelet count increased [Unknown]
  - Lymphocyte count decreased [Unknown]

NARRATIVE: CASE EVENT DATE: 20200214
